FAERS Safety Report 7846702-6 (Version None)
Quarter: 2011Q4

REPORT INFORMATION
  Report Type: 
  Country: None (occurrence: None)
  Receive Date: 20111025
  Receipt Date: 20111019
  Transmission Date: 20120403
  Serious: Yes (Other)
  Sender: FDA-Public Use
  Company Number: PHHY2011JP92791

PATIENT
  Age: 52 Year
  Sex: Female

DRUGS (1)
  1. ZOMETA [Suspect]
     Route: 042

REACTIONS (5)
  - JAW FRACTURE [None]
  - HAEMOGLOBIN DECREASED [None]
  - PATHOLOGICAL FRACTURE [None]
  - GASTRIC VARICES [None]
  - OSTEONECROSIS OF JAW [None]
